FAERS Safety Report 6918222-4 (Version None)
Quarter: 2010Q3

REPORT INFORMATION
  Report Type: 
  Country: None (occurrence: None)
  Receive Date: 20100806
  Receipt Date: 20100728
  Transmission Date: 20110219
  Serious: Yes (Disabling, Other)
  Sender: FDA-Public Use
  Company Number: 2009AL004334

PATIENT
  Age: 55 Year
  Sex: Female
  Weight: 51.2565 kg

DRUGS (12)
  1. METOCLOPRAMIDE TABLETS USP, 10 MG (PUREPAC) [Suspect]
     Indication: GASTROOESOPHAGEAL REFLUX DISEASE
     Dosage: 10 MG;HS;PO
     Route: 048
     Dates: start: 20030328, end: 20061029
  2. METOCLOPRAMIDE [Suspect]
     Indication: GASTROOESOPHAGEAL REFLUX DISEASE
     Dosage: 10 MG;HS;PO
     Route: 048
     Dates: start: 20030328, end: 20061029
  3. PROTONIX [Concomitant]
  4. ZANTAC [Concomitant]
  5. GAVISCON [Concomitant]
  6. FIORICET [Concomitant]
  7. LIBRAX [Concomitant]
  8. BENADRYL [Concomitant]
  9. ATIVAN [Concomitant]
  10. BENTYL [Concomitant]
  11. SEROQUEL [Concomitant]
  12. PREV MEDS [Concomitant]

REACTIONS (39)
  - ABDOMINAL DISTENSION [None]
  - ACTIVITIES OF DAILY LIVING IMPAIRED [None]
  - AKATHISIA [None]
  - ANHEDONIA [None]
  - ANXIETY [None]
  - DEFORMITY [None]
  - DEPRESSION [None]
  - DRUG HYPERSENSITIVITY [None]
  - DYSTONIA [None]
  - ECONOMIC PROBLEM [None]
  - EMOTIONAL DISTRESS [None]
  - EXTRAPYRAMIDAL DISORDER [None]
  - FEELING COLD [None]
  - FEELING JITTERY [None]
  - FLATULENCE [None]
  - GRIMACING [None]
  - HEADACHE [None]
  - HYPOAESTHESIA [None]
  - IMPAIRED WORK ABILITY [None]
  - INJURY [None]
  - INSOMNIA [None]
  - INTERVERTEBRAL DISC DEGENERATION [None]
  - MENTAL DISORDER [None]
  - METABOLIC DISORDER [None]
  - MIGRAINE [None]
  - MOVEMENT DISORDER [None]
  - MUSCLE SPASMS [None]
  - MUSCULOSKELETAL STIFFNESS [None]
  - MYALGIA [None]
  - NAUSEA [None]
  - NERVOUS SYSTEM DISORDER [None]
  - PAIN [None]
  - PALLOR [None]
  - RESTLESSNESS [None]
  - SUICIDAL IDEATION [None]
  - TARDIVE DYSKINESIA [None]
  - TREMOR [None]
  - VISUAL IMPAIRMENT [None]
  - WEIGHT INCREASED [None]
